FAERS Safety Report 6277396-1 (Version None)
Quarter: 2009Q3

REPORT INFORMATION
  Report Type: 
  Country: None (occurrence: None)
  Receive Date: 20090722
  Receipt Date: 20090507
  Transmission Date: 20100115
  Serious: No
  Sender: FDA-Public Use
  Company Number: US-BRISTOL-MYERS SQUIBB COMPANY-14614903

PATIENT
  Age: 66 Year
  Sex: Female
  Weight: 58 kg

DRUGS (3)
  1. COUMADIN [Suspect]
     Indication: ATRIAL FIBRILLATION
     Dosage: 1 DOSAGE FORM = 2 MG FOR 5DAYS AND 3 MG FOR 2 DAYS
     Dates: start: 20030901
  2. ATENOLOL [Concomitant]
  3. MULTI-VITAMIN [Concomitant]

REACTIONS (1)
  - HEPATIC ENZYME INCREASED [None]
